FAERS Safety Report 5644408-5 (Version None)
Quarter: 2008Q1

REPORT INFORMATION
  Report Type: 
  Country: None (occurrence: None)
  Receive Date: 20080229
  Receipt Date: 20080217
  Transmission Date: 20080703
  Serious: Yes (Other)
  Sender: FDA-Public Use
  Company Number: US-BAYER-200810685BCC

PATIENT
  Age: 47 Year
  Sex: Male

DRUGS (2)
  1. ALKA SELTZER PLUS NIGHT COLD EFFERVESCENT [Suspect]
     Indication: INFLUENZA
     Route: 048
     Dates: start: 20080212
  2. LAMICTAL [Suspect]
     Indication: DRUG USE FOR UNKNOWN INDICATION

REACTIONS (3)
  - ABASIA [None]
  - DYSPNOEA [None]
  - MUSCULAR WEAKNESS [None]
